FAERS Safety Report 7413618-9 (Version None)
Quarter: 2011Q2

REPORT INFORMATION
  Report Type: 
  Country: None (occurrence: None)
  Receive Date: 20110413
  Receipt Date: 20091029
  Transmission Date: 20111010
  Serious: Yes (Other)
  Sender: FDA-Public Use
  Company Number: GB-GENZYME-FABR-1001882

PATIENT
  Sex: Female
  Weight: 83.9 kg

DRUGS (7)
  1. CANDESARTAN [Concomitant]
     Indication: SYSTEMIC LUPUS ERYTHEMATOSUS
     Dosage: 4 MG, UNK
  2. VALPROATE SODIUM [Concomitant]
     Indication: PAIN
     Dosage: 900 MG, UNK
  3. FABRAZYME [Suspect]
     Indication: FABRY'S DISEASE
     Dosage: 75 MG, UNK
     Route: 042
     Dates: start: 20040112
  4. DILTIAZEM [Concomitant]
     Indication: CARDIAC DISORDER
     Dosage: 120 MG, UNK
  5. AZATHIOPRINE [Concomitant]
     Indication: SYSTEMIC LUPUS ERYTHEMATOSUS
     Dosage: 125 MG, UNK
  6. ASPIRIN [Concomitant]
     Indication: COAGULOPATHY
     Dosage: 75 MG, UNK
  7. AMITRIPTYLINE [Concomitant]
     Indication: PAIN
     Dosage: 60 MG, UNK

REACTIONS (1)
  - MYOCARDIAL INFARCTION [None]
